FAERS Safety Report 9702380 (Version 1)
Quarter: 2013Q4

REPORT INFORMATION
  Report Type: Spontaneous
  Country: CO (occurrence: CO)
  Receive Date: 20131121
  Receipt Date: 20131121
  Transmission Date: 20140711
  Serious: Yes (Other)
  Sender: FDA-Public Use
  Company Number: CO-PFIZER INC-2013332595

PATIENT
  Age: 11 Year
  Sex: Female

DRUGS (1)
  1. GENOTROPIN [Suspect]
     Indication: TURNER^S SYNDROME
     Dosage: 1.6 MG, 1X/DAY
     Route: 058
     Dates: start: 200906, end: 20130911

REACTIONS (1)
  - Bone cancer [Not Recovered/Not Resolved]
